FAERS Safety Report 7298876-6 (Version None)
Quarter: 2011Q1

REPORT INFORMATION
  Report Type: 
  Country: None (occurrence: None)
  Receive Date: 20110217
  Receipt Date: 20110207
  Transmission Date: 20110831
  Serious: Yes (Hospitalization)
  Sender: FDA-Public Use
  Company Number: GB-ROCHE-759244

PATIENT
  Age: 85 Year
  Sex: Female

DRUGS (2)
  1. IBANDRONIC ACID [Suspect]
     Indication: OSTEOPOROSIS
     Dosage: IBANDRONATE SODIUM
     Route: 065
  2. IBANDRONIC ACID [Suspect]
     Dosage: DRUG WITHDRAWN
     Route: 065

REACTIONS (2)
  - FEMUR FRACTURE [None]
  - BONE METABOLISM DISORDER [None]
